FAERS Safety Report 9004694 (Version 2)
Quarter: 2013Q1

REPORT INFORMATION
  Report Type: Spontaneous
  Country: US (occurrence: US)
  Receive Date: 20130109
  Receipt Date: 20130326
  Transmission Date: 20140127
  Serious: Yes (Hospitalization)
  Sender: FDA-Public Use
  Company Number: US-ELI_LILLY_AND_COMPANY-US201301000534

PATIENT
  Age: 67 Year
  Sex: Female
  Weight: 104 kg

DRUGS (6)
  1. FORTEO [Suspect]
     Dosage: 20 UG, QD
     Route: 058
     Dates: start: 20120102
  2. ASA [Concomitant]
  3. VITAMIN D3 [Concomitant]
  4. ADVAIR [Concomitant]
  5. ATROVENT [Concomitant]
  6. SINGULAIR [Concomitant]

REACTIONS (1)
  - Nephrolithiasis [Recovered/Resolved]
